FAERS Safety Report 5194729-8 (Version None)
Quarter: 2006Q4

REPORT INFORMATION
  Report Type: 
  Country: None (occurrence: None)
  Receive Date: 20061229
  Receipt Date: 20061218
  Transmission Date: 20070319
  Serious: Yes (Disabling)
  Sender: FDA-Public Use
  Company Number: PHBS2006IT19646

PATIENT
  Age: 74 Year
  Sex: Male

DRUGS (2)
  1. ZOMETA [Suspect]
     Indication: RENAL CELL CARCINOMA STAGE UNSPECIFIED
     Dosage: 4 MG, MONTHLY
     Route: 042
     Dates: start: 20040601
  2. SUNITINIB MALATE [Concomitant]
     Route: 065

REACTIONS (1)
  - OSTEONECROSIS [None]
